FAERS Safety Report 25481571 (Version 1)
Quarter: 2025Q2

REPORT INFORMATION
  Report Type: Spontaneous
  Country: US (occurrence: US)
  Receive Date: 20250626
  Receipt Date: 20250626
  Transmission Date: 20250717
  Serious: Yes (Life-Threatening, Hospitalization, Other)
  Sender: NOVO NORDISK
  Company Number: US-NOVOPROD-1462724

PATIENT
  Age: 72 Year
  Sex: Female

DRUGS (3)
  1. TRESIBA [Suspect]
     Active Substance: INSULIN DEGLUDEC
     Indication: Diabetes mellitus
     Route: 058
     Dates: start: 2020
  2. TRESIBA [Suspect]
     Active Substance: INSULIN DEGLUDEC
     Route: 058
  3. TRESIBA [Suspect]
     Active Substance: INSULIN DEGLUDEC
     Route: 058

REACTIONS (5)
  - Pneumonia [Unknown]
  - Sepsis [Not Recovered/Not Resolved]
  - Bedridden [Not Recovered/Not Resolved]
  - Blood disorder [Not Recovered/Not Resolved]
  - Transient ischaemic attack [Not Recovered/Not Resolved]

NARRATIVE: CASE EVENT DATE: 20240201
